FAERS Safety Report 10334835 (Version 1)
Quarter: 2014Q3

REPORT INFORMATION
  Report Type: Spontaneous
  Country: IT (occurrence: IT)
  Receive Date: 20140723
  Receipt Date: 20140723
  Transmission Date: 20150326
  Serious: Yes (Hospitalization)
  Sender: FDA-Public Use
  Company Number: IT-MYLANLABS-2014S1016930

PATIENT
  Age: 90 Year
  Sex: Male

DRUGS (4)
  1. HUMALOG [Suspect]
     Active Substance: INSULIN LISPRO
     Indication: TYPE 1 DIABETES MELLITUS
     Dosage: 30 LU DAILY
     Route: 058
     Dates: start: 20140101, end: 20140304
  2. CARDIOASPIRIN [Concomitant]
     Active Substance: ASPIRIN
     Indication: PRODUCT USED FOR UNKNOWN INDICATION
     Dosage: 100 MG GASTRO RESISTANT TABLET
     Route: 048
  3. LANTUS [Suspect]
     Active Substance: INSULIN GLARGINE
     Indication: TYPE 1 DIABETES MELLITUS
     Dosage: 26 LU DAILY
     Route: 058
     Dates: start: 20140101, end: 20140304
  4. METFORMIN [Suspect]
     Active Substance: METFORMIN HYDROCHLORIDE
     Indication: TYPE 1 DIABETES MELLITUS
     Dosage: 1000 MG DAILY
     Route: 048
     Dates: start: 20140101, end: 20140304

REACTIONS (3)
  - Hypoglycaemia [Unknown]
  - Loss of consciousness [Unknown]
  - Balance disorder [Unknown]

NARRATIVE: CASE EVENT DATE: 20140304
